FAERS Safety Report 10055229 (Version 1)
Quarter: 2014Q2

REPORT INFORMATION
  Report Type: Spontaneous
  Country: US (occurrence: US)
  Receive Date: 20140403
  Receipt Date: 20140403
  Transmission Date: 20141212
  Serious: No
  Sender: FDA-Public Use
  Company Number: US-US-EMD SERONO, INC.-7278274

PATIENT
  Sex: Male

DRUGS (8)
  1. REBIF [Suspect]
     Indication: MULTIPLE SCLEROSIS
  2. BUSPIRONE [Suspect]
     Indication: DEPRESSION
  3. OMEGA 3 [Concomitant]
     Indication: SUPPLEMENTATION THERAPY
  4. FERROUS GLUCONATE [Concomitant]
     Indication: MINERAL SUPPLEMENTATION
  5. DOCUSATE [Concomitant]
     Indication: ENZYME SUPPLEMENTATION
  6. VITAMIN D3 [Concomitant]
     Indication: ENZYME SUPPLEMENTATION
  7. VITAMIN B12                        /00056201/ [Concomitant]
     Indication: ENZYME SUPPLEMENTATION
  8. ASPIRIN                            /00002701/ [Concomitant]
     Indication: CARDIAC DISORDER

REACTIONS (5)
  - Disorientation [Recovered/Resolved]
  - Lethargy [Unknown]
  - Speech disorder [Unknown]
  - Sleep disorder [Not Recovered/Not Resolved]
  - Muscle spasticity [Not Recovered/Not Resolved]
